FAERS Safety Report 9805808 (Version 1)
Quarter: 2014Q1

REPORT INFORMATION
  Report Type: Spontaneous
  Country: US (occurrence: US)
  Receive Date: 20140109
  Receipt Date: 20140109
  Transmission Date: 20141002
  Serious: No
  Sender: FDA-Public Use
  Company Number: US-B.I. PHARMACEUTICALS,INC./RIDGEFIELD-2014-BI-00199BP

PATIENT
  Age: 51 Year
  Sex: Female
  Weight: 59 kg

DRUGS (3)
  1. DULCOLAX STOOL SOFTENER [Suspect]
     Indication: CONSTIPATION
     Dosage: 300 MG
     Route: 048
     Dates: start: 20140101, end: 20140101
  2. SYNTHROID [Concomitant]
     Indication: HYPOTHYROIDISM
     Dosage: 1.5 MCG
     Route: 048
     Dates: start: 1993
  3. DETROL [Concomitant]
     Indication: POLLAKIURIA
     Route: 048
     Dates: start: 2003

REACTIONS (1)
  - Drug ineffective [Not Recovered/Not Resolved]
